FAERS Safety Report 20725517 (Version 1)
Quarter: 2022Q2

REPORT INFORMATION
  Report Type: Spontaneous
  Country: FR (occurrence: FR)
  Receive Date: 20220419
  Receipt Date: 20220419
  Transmission Date: 20220721
  Serious: Yes (Hospitalization, Other)
  Sender: FDA-Public Use
  Company Number: None

PATIENT
  Age: 73 Year
  Sex: Male
  Weight: 82 kg

DRUGS (2)
  1. IPILIMUMAB [Suspect]
     Active Substance: IPILIMUMAB
     Indication: Malignant melanoma
     Dosage: POSOLOGIE NON PRECISEE?5 MG/ML
     Route: 041
     Dates: start: 20211223, end: 20220224
  2. NIVOLUMAB [Suspect]
     Active Substance: NIVOLUMAB
     Indication: Malignant melanoma
     Dosage: POSOLOGIE NON PRECISEE?10 MG/ML
     Route: 041
     Dates: start: 20211223, end: 20220224

REACTIONS (3)
  - Confusional state [Recovering/Resolving]
  - Encephalitis [Recovering/Resolving]
  - Vertigo [Recovering/Resolving]

NARRATIVE: CASE EVENT DATE: 20220120
